FAERS Safety Report 17254334 (Version 4)
Quarter: 2021Q2

REPORT INFORMATION
  Report Type: Report from Study
  Country: US (occurrence: US)
  Receive Date: 20200109
  Receipt Date: 20210628
  Transmission Date: 20210716
  Serious: No
  Sender: FDA-Public Use
  Company Number: US-INCYTE CORPORATION-2019IN012255

PATIENT

DRUGS (10)
  1. JAKAFI [Suspect]
     Active Substance: RUXOLITINIB
     Indication: MYELOFIBROSIS
     Dosage: 10 MILLIGRAM, BID (MORNING AND EVENING)
     Route: 048
     Dates: start: 20191018
  2. JAKAFI [Suspect]
     Active Substance: RUXOLITINIB
     Dosage: 15 MILLIGRAM, BID
     Route: 048
  3. JAKAFI [Suspect]
     Active Substance: RUXOLITINIB
     Dosage: 5MG 4 TABLETS DAILY
     Route: 048
     Dates: start: 20191021
  4. JAKAFI [Suspect]
     Active Substance: RUXOLITINIB
     Dosage: 5 MILLIGRAM, BID
     Route: 048
  5. JAKAFI [Suspect]
     Active Substance: RUXOLITINIB
     Dosage: 15 MILLIGRAM
     Route: 048
  6. JAKAFI [Suspect]
     Active Substance: RUXOLITINIB
     Dosage: 10 MILLIGRAM, BID
     Route: 048
  7. JAKAFI [Suspect]
     Active Substance: RUXOLITINIB
     Dosage: 5 MILLIGRAM, BID
     Route: 048
  8. JAKAFI [Suspect]
     Active Substance: RUXOLITINIB
     Dosage: 20 MILLIGRAM, BID
     Route: 065
  9. JAKAFI [Suspect]
     Active Substance: RUXOLITINIB
     Dosage: 10 MILLIGRAM, BID
     Route: 065
  10. VITAMINS NOS [Concomitant]
     Active Substance: VITAMINS
     Indication: PRODUCT USED FOR UNKNOWN INDICATION
     Route: 065

REACTIONS (14)
  - Splenomegaly [Unknown]
  - White blood cell count abnormal [Unknown]
  - Wrong technique in product usage process [Unknown]
  - Anaemia [Unknown]
  - Platelet count decreased [Recovering/Resolving]
  - Blood count abnormal [Unknown]
  - Arthropathy [Unknown]
  - Drug ineffective [Unknown]
  - Asthenia [Unknown]
  - Weight decreased [Unknown]
  - Contusion [Unknown]
  - Feeling abnormal [Unknown]
  - White blood cell count increased [Unknown]
  - Red blood cell count decreased [Unknown]
